FAERS Safety Report 6122224-8 (Version None)
Quarter: 2009Q1

REPORT INFORMATION
  Report Type: 
  Country: None (occurrence: None)
  Receive Date: 20090316
  Receipt Date: 20090316
  Transmission Date: 20090719
  Serious: No
  Sender: FDA-Public Use
  Company Number: None

PATIENT
  Age: 63 Year
  Sex: Male
  Weight: 99.7913 kg

DRUGS (1)
  1. NEXIUM [Suspect]
     Indication: GASTRIC DISORDER
     Dosage: ONE PILL ONCE A DAY
     Dates: start: 20090203, end: 20090312

REACTIONS (5)
  - ABDOMINAL PAIN UPPER [None]
  - HEPATIC PAIN [None]
  - INSOMNIA [None]
  - NAUSEA [None]
  - RENAL PAIN [None]
